FAERS Safety Report 5025082-8 (Version None)
Quarter: 2006Q2

REPORT INFORMATION
  Report Type: 
  Country: None (occurrence: None)
  Receive Date: 20060607
  Receipt Date: 20060523
  Transmission Date: 20061013
  Serious: Yes (Death, Other)
  Sender: FDA-Public Use
  Company Number: USA-2006-0024184

PATIENT
  Age: 54 Year
  Sex: Female
  Weight: 86.2 kg

DRUGS (12)
  1. OXYCODONE HCL [Suspect]
     Indication: PAIN
     Dosage: 80 MG, TID
  2. ZYRTEC [Concomitant]
  3. LOPROX (CICLOPIROX OLAMINE) [Concomitant]
  4. PREMARIN [Concomitant]
  5. ZANAFLEX [Concomitant]
  6. PREVACID [Concomitant]
  7. LIPITOR [Concomitant]
  8. PEPCID [Concomitant]
  9. LORAZEPAM [Concomitant]
  10. AMBIEN [Concomitant]
  11. TRAZODONE HCL [Concomitant]
  12. DYAZIDE (HYDROCHLOROTHIAZIDE) [Concomitant]

REACTIONS (1)
  - DRUG ABUSER [None]
